FAERS Safety Report 20916668 (Version 1)
Quarter: 2022Q2

REPORT INFORMATION
  Report Type: Spontaneous
  Country: US (occurrence: US)
  Receive Date: 20220605
  Receipt Date: 20220605
  Transmission Date: 20220721
  Serious: No
  Sender: FDA-Public Use
  Company Number: US-BRISTOL-MYERS SQUIBB COMPANY-2022-049056

PATIENT
  Age: 14 Year
  Sex: Female

DRUGS (1)
  1. THALOMID [Suspect]
     Active Substance: THALIDOMIDE
     Indication: Brain neoplasm malignant
     Dosage: DOSE: 100 MILLIGRAM, FREQ: DAILY
     Route: 048
     Dates: start: 20211008

REACTIONS (3)
  - Fatigue [Unknown]
  - Fatigue [Unknown]
  - Intentional product use issue [Unknown]
